FAERS Safety Report 16257268 (Version 1)
Quarter: 2019Q2

REPORT INFORMATION
  Report Type: Report from Study
  Country: None (occurrence: US)
  Receive Date: 20190430
  Receipt Date: 20190430
  Transmission Date: 20190711
  Serious: Yes (Hospitalization, Other)
  Sender: FDA-Public Use
  Company Number: US-ABBVIE-19S-163-2762228-00

PATIENT
  Age: 59 Year
  Sex: Male
  Weight: 108 kg

DRUGS (2)
  1. CREON [Suspect]
     Active Substance: PANCRELIPASE AMYLASE\PANCRELIPASE LIPASE\PANCRELIPASE PROTEASE
     Indication: PANCREATIC FAILURE
     Dosage: 3 CAPS PER MEAL UP TO 3 TIMES A DAY, 1-2 CAPS UP TO 4 CAPS A DAY. UP TO 14 CAPS A DAY MAX.
     Route: 048
     Dates: start: 201901, end: 20190414
  2. CREON [Suspect]
     Active Substance: PANCRELIPASE AMYLASE\PANCRELIPASE LIPASE\PANCRELIPASE PROTEASE
     Indication: PANCREATIC CARCINOMA
     Dosage: 3 CAPS PER MEAL UP TO 3 TIMES A DAY, 1-2 CAPS UP TO 4 CAPS A DAY. UP TO 14 CAPS A DAY MAX.
     Route: 048
     Dates: start: 20190415

REACTIONS (3)
  - Blood creatinine increased [Recovering/Resolving]
  - Diarrhoea [Recovering/Resolving]
  - Abnormal faeces [Recovering/Resolving]

NARRATIVE: CASE EVENT DATE: 20190222
